FAERS Safety Report 4845747-8 (Version None)
Quarter: 2005Q4

REPORT INFORMATION
  Report Type: 
  Country: None (occurrence: None)
  Receive Date: 20051201
  Receipt Date: 20051116
  Transmission Date: 20060501
  Serious: Yes (Death)
  Sender: FDA-Public Use
  Company Number: ENTC2005-0333

PATIENT
  Age: 54 Year
  Sex: Female

DRUGS (2)
  1. STALEVO 100 [Suspect]
     Indication: PARKINSON'S DISEASE
     Dosage: 450 MG (150 MG, 3 IN 1 D) ORAL
     Route: 048
     Dates: start: 20050922
  2. AKINETON [Concomitant]

REACTIONS (6)
  - ACUTE MYOCARDIAL INFARCTION [None]
  - EXTRAPYRAMIDAL DISORDER [None]
  - GAIT DISTURBANCE [None]
  - MUSCLE CONTRACTURE [None]
  - MUSCLE SPASMS [None]
  - SUDDEN DEATH [None]
